FAERS Safety Report 20994395 (Version 1)
Quarter: 2022Q2

REPORT INFORMATION
  Report Type: Spontaneous
  Country: US (occurrence: None)
  Receive Date: 20220622
  Receipt Date: 20220622
  Transmission Date: 20220720
  Serious: No
  Sender: FDA-Public Use
  Company Number: 2022A219320

PATIENT
  Age: 70 Year
  Sex: Male

DRUGS (7)
  1. OMEPRAZOLE [Interacting]
     Active Substance: OMEPRAZOLE
     Route: 048
  2. PAXLOVID [Interacting]
     Active Substance: NIRMATRELVIR\RITONAVIR
     Dosage: TWO DOSES TOTAL. LAST NIGHT AND THIS MORNING
     Route: 065
  3. PROPRANOLOL [Concomitant]
     Active Substance: PROPRANOLOL HYDROCHLORIDE
  4. FINASTERIDE [Concomitant]
     Active Substance: FINASTERIDE
  5. TERAZOSIN [Concomitant]
     Active Substance: TERAZOSIN HYDROCHLORIDE
  6. PRAVASTATIN [Concomitant]
     Active Substance: PRAVASTATIN
  7. DIAZEPAM [Concomitant]
     Active Substance: DIAZEPAM

REACTIONS (3)
  - COVID-19 [Unknown]
  - Drug interaction [Unknown]
  - Body temperature increased [Recovered/Resolved]
